FAERS Safety Report 13710203 (Version 1)
Quarter: 2017Q3

REPORT INFORMATION
  Report Type: Spontaneous
  Country: US (occurrence: US)
  Receive Date: 20170703
  Receipt Date: 20170703
  Transmission Date: 20171127
  Serious: Yes (Other)
  Sender: FDA-Public Use
  Company Number: US-AMGEN-USASP2017097585

PATIENT
  Age: 69 Year
  Sex: Female

DRUGS (5)
  1. ASPIRIN. [Concomitant]
     Active Substance: ASPIRIN
     Dosage: UNK
  2. VITAMIN D [Concomitant]
     Active Substance: CHOLECALCIFEROL
     Dosage: UNK, 2 TIMES/WK
  3. PROLIA [Suspect]
     Active Substance: DENOSUMAB
     Indication: OSTEOPOROSIS POSTMENOPAUSAL
     Dosage: UNK
     Route: 065
  4. CALCIUM [Concomitant]
     Active Substance: CALCIUM
     Dosage: UNK, 2 TIMES/WK
  5. NEURONTIN [Concomitant]
     Active Substance: GABAPENTIN
     Dosage: UNK

REACTIONS (11)
  - Decreased immune responsiveness [Unknown]
  - Blood cholesterol increased [Not Recovered/Not Resolved]
  - Feeling abnormal [Unknown]
  - Jaw disorder [Unknown]
  - Diabetes mellitus inadequate control [Unknown]
  - Diverticulitis [Unknown]
  - Angina pectoris [Unknown]
  - Pain [Unknown]
  - Pain in extremity [Unknown]
  - Arthritis [Unknown]
  - Adverse drug reaction [Unknown]

NARRATIVE: CASE EVENT DATE: 2017
